FAERS Safety Report 6874676-3 (Version None)
Quarter: 2010Q3

REPORT INFORMATION
  Report Type: 
  Country: None (occurrence: None)
  Receive Date: 20100722
  Receipt Date: 20100706
  Transmission Date: 20110219
  Serious: Yes (Other)
  Sender: FDA-Public Use
  Company Number: ACO_01351_2010

PATIENT
  Sex: Male
  Weight: 92.9874 kg

DRUGS (8)
  1. AMPYRA [Suspect]
     Indication: GAIT DISTURBANCE
     Dosage: 10 MG BID ORAL, (10 MG BID ORAL), (10 MG BID ORAL)
     Route: 048
     Dates: start: 20100426, end: 20100501
  2. AMPYRA [Suspect]
     Indication: GAIT DISTURBANCE
     Dosage: 10 MG BID ORAL, (10 MG BID ORAL), (10 MG BID ORAL)
     Route: 048
     Dates: start: 20100501, end: 20100522
  3. AMPYRA [Suspect]
     Indication: GAIT DISTURBANCE
     Dosage: 10 MG BID ORAL, (10 MG BID ORAL), (10 MG BID ORAL)
     Route: 048
     Dates: start: 20100702
  4. REBIF [Concomitant]
  5. LYRICA [Concomitant]
  6. NUVIGIL [Concomitant]
  7. LEXAPRO [Concomitant]
  8. OMEPRAZOLE [Concomitant]

REACTIONS (6)
  - DEPRESSED LEVEL OF CONSCIOUSNESS [None]
  - ELECTROENCEPHALOGRAM ABNORMAL [None]
  - FALL [None]
  - HEADACHE [None]
  - HYPERVENTILATION [None]
  - URINARY TRACT INFECTION [None]
